FAERS Safety Report 7365469-1 (Version None)
Quarter: 2011Q1

REPORT INFORMATION
  Report Type: 
  Country: None (occurrence: None)
  Receive Date: 20110316
  Receipt Date: 20110316
  Transmission Date: 20110831
  Serious: No
  Sender: FDA-Public Use
  Company Number: None

PATIENT
  Sex: Female
  Weight: 61.2356 kg

DRUGS (1)
  1. AMBIEN [Suspect]
     Indication: TINNITUS
     Dosage: 1 PILL NIGHTLY MOUTH
     Dates: start: 20110201, end: 20110301

REACTIONS (5)
  - NERVOUSNESS [None]
  - HYPERHIDROSIS [None]
  - TREMOR [None]
  - DYSPHEMIA [None]
  - FEELING HOT [None]
